FAERS Safety Report 13049852 (Version 2)
Quarter: 2016Q4

REPORT INFORMATION
  Report Type: Report from Study
  Country: CO (occurrence: CO)
  Receive Date: 20161221
  Receipt Date: 20161228
  Transmission Date: 20170207
  Serious: Yes (Death)
  Sender: FDA-Public Use
  Company Number: CO-ASTELLAS-2016US050126

PATIENT
  Age: 14 Year
  Sex: Female
  Weight: 32 kg

DRUGS (1)
  1. TACROLIMUS. [Suspect]
     Active Substance: TACROLIMUS
     Indication: LIVER TRANSPLANT
     Route: 048
     Dates: start: 20160126, end: 20160224

REACTIONS (1)
  - Liver transplant rejection [Fatal]

NARRATIVE: CASE EVENT DATE: 20160224
